FAERS Safety Report 13034636 (Version 1)
Quarter: 2016Q4

REPORT INFORMATION
  Report Type: Spontaneous
  Country: US (occurrence: US)
  Receive Date: 20161216
  Receipt Date: 20161216
  Transmission Date: 20170207
  Serious: No
  Sender: FDA-Public Use
  Company Number: US-BAUSCH-BL-2016-003773

PATIENT
  Age: 1 Year
  Sex: Female

DRUGS (1)
  1. TIMOLOL GEL FORMING SOLUTION [Suspect]
     Active Substance: TIMOLOL
     Indication: HAEMANGIOMA
     Route: 061

REACTIONS (4)
  - Off label use [Unknown]
  - Product formulation issue [Unknown]
  - Drug administered at inappropriate site [Unknown]
  - Drug prescribing error [Unknown]
